FAERS Safety Report 6531345-7 (Version None)
Quarter: 2010Q1

REPORT INFORMATION
  Report Type: 
  Country: None (occurrence: None)
  Receive Date: 20100108
  Receipt Date: 20090924
  Transmission Date: 20100710
  Serious: No
  Sender: FDA-Public Use
  Company Number: A0808872A

PATIENT
  Age: 62 Year
  Sex: Female

DRUGS (7)
  1. TYKERB [Suspect]
     Indication: BREAST CANCER
     Dosage: 5TAB PER DAY
     Route: 048
     Dates: start: 20090918
  2. XELODA [Suspect]
     Dosage: 3TAB TWICE PER DAY
     Route: 048
     Dates: start: 20090918
  3. HYDROCHLOROTHIAZIDE [Concomitant]
  4. VITAMINS [Concomitant]
  5. LOVAZA [Concomitant]
  6. POTASSIUM [Concomitant]
  7. IRON [Concomitant]

REACTIONS (3)
  - INSOMNIA [None]
  - LIP DISCOLOURATION [None]
  - SKIN DISCOLOURATION [None]
